FAERS Safety Report 22171084 (Version 1)
Quarter: 2023Q2

REPORT INFORMATION
  Report Type: Spontaneous
  Country: CN (occurrence: CN)
  Receive Date: 20230404
  Receipt Date: 20230404
  Transmission Date: 20230721
  Serious: Yes (Other)
  Sender: FDA-Public Use
  Company Number: CN-Accord-306836

PATIENT
  Age: 52 Year
  Sex: Female

DRUGS (1)
  1. ERLOTINIB HYDROCHLORIDE [Suspect]
     Active Substance: ERLOTINIB HYDROCHLORIDE
     Indication: Metastases to bone

REACTIONS (6)
  - Trichomegaly [Unknown]
  - Conjunctival hyperaemia [Unknown]
  - Ulcerative keratitis [Unknown]
  - Iridocyclitis [Recovered/Resolved]
  - Keratopathy [Recovered/Resolved]
  - Ophthalmic herpes simplex [Unknown]
